FAERS Safety Report 7877634-5 (Version None)
Quarter: 2011Q4

REPORT INFORMATION
  Report Type: 
  Country: None (occurrence: None)
  Receive Date: 20111031
  Receipt Date: 20111025
  Transmission Date: 20120403
  Serious: Yes (Hospitalization, Other)
  Sender: FDA-Public Use
  Company Number: DE-ABBOTT-11P-062-0868411-00

PATIENT
  Sex: Male

DRUGS (1)
  1. HUMIRA [Suspect]
     Indication: PSORIASIS
     Dates: start: 20110515

REACTIONS (4)
  - INCREASED UPPER AIRWAY SECRETION [None]
  - SLEEP DISORDER [None]
  - HYPERSENSITIVITY [None]
  - NASAL CONGESTION [None]
